FAERS Safety Report 9215484 (Version 2)
Quarter: 2013Q2

REPORT INFORMATION
  Report Type: Spontaneous
  Country: US (occurrence: US)
  Receive Date: 20130406
  Receipt Date: 20130617
  Transmission Date: 20140414
  Serious: No
  Sender: FDA-Public Use
  Company Number: US-009507513-1304USA000695

PATIENT
  Sex: Male

DRUGS (3)
  1. ZOCOR [Suspect]
     Dosage: UNK
     Route: 048
     Dates: start: 2007, end: 2007
  2. ZETIA [Suspect]
     Indication: BLOOD CHOLESTEROL INCREASED
     Dosage: UNK
     Route: 048
     Dates: start: 2007
  3. ZETIA [Suspect]
     Indication: LOW DENSITY LIPOPROTEIN

REACTIONS (2)
  - Amnesia [Recovered/Resolved]
  - Amnesia [Recovered/Resolved]
